FAERS Safety Report 4376185-2 (Version None)
Quarter: 2004Q2

REPORT INFORMATION
  Report Type: 
  Country: None (occurrence: None)
  Receive Date: 20040506
  Receipt Date: 20040524
  Transmission Date: 20050107
  Serious: Yes (Hospitalization, Other)
  Sender: FDA-Public Use
  Company Number: 2004026244

PATIENT
  Age: 56 Year
  Sex: Male
  Weight: 75 kg

DRUGS (10)
  1. UNACID INJECTION (AMPICILLIN, SULBACTAM) [Suspect]
     Indication: EMPYEMA
     Dosage: INTRAVENOUS
     Route: 042
     Dates: start: 20031228
  2. UNACID PD (SULTAMICILLIN) [Suspect]
     Indication: EMPYEMA
     Dosage: 2 UNK (1 UNK, 2 IN 1 D), ORAL
     Route: 048
     Dates: start: 20040101
  3. UNACID PD (SULTAMICILLIN) [Suspect]
     Indication: OSTEOMYELITIS
     Dosage: 2 UNK (1 UNK, 2 IN 1 D), ORAL
     Route: 048
     Dates: start: 20040101
  4. CLINDAMYCIN HYDROCHLORIDE [Suspect]
     Indication: OSTEOMYELITIS
     Dosage: 2 UNK (1 UNK, 2 IN 1 D), ORAL
     Route: 048
     Dates: start: 20040101
  5. PANTOPRAZOLE SODIUM [Concomitant]
  6. OMNIFLORA (ESCHERICHIA COLI, LYOPHILIZED, LACTOBILLUS ACIDOPHILUS, LYO [Concomitant]
  7. METAMIZOLE SODIUM [Concomitant]
  8. FENTANYL [Concomitant]
  9. ENOXAPARIN SODIUM [Concomitant]
  10. CLINDAMYCIN [Concomitant]

REACTIONS (12)
  - ABDOMINAL DISCOMFORT [None]
  - ARTHROPATHY [None]
  - BURSITIS [None]
  - DIARRHOEA [None]
  - DYSGEUSIA [None]
  - EMPYEMA [None]
  - GASTROINTESTINAL FUNGAL INFECTION [None]
  - NAUSEA [None]
  - ORAL FUNGAL INFECTION [None]
  - OSTEOLYSIS [None]
  - OSTEOMYELITIS [None]
  - RASH PAPULAR [None]
